FAERS Safety Report 13149889 (Version 10)
Quarter: 2017Q2

REPORT INFORMATION
  Report Type: Report from Study
  Country: DE (occurrence: DE)
  Receive Date: 20170125
  Receipt Date: 20170601
  Transmission Date: 20170830
  Serious: Yes (Hospitalization, Other)
  Sender: FDA-Public Use
  Company Number: DE-CELGENEUS-DEU-2017012124

PATIENT
  Age: 36 Year
  Sex: Female
  Weight: 67 kg

DRUGS (13)
  1. ABRAXANE [Suspect]
     Active Substance: PACLITAXEL
     Dosage: 217 MILLIGRAM
     Route: 041
     Dates: end: 20170222
  2. EPIRUBICIN [Suspect]
     Active Substance: EPIRUBICIN
     Indication: BREAST CANCER
     Dosage: 156  MILLIGRAM
     Route: 041
     Dates: start: 20170301, end: 20170422
  3. MEDI4736 (DURVALUMAB) [Suspect]
     Active Substance: DURVALUMAB
     Indication: BREAST CANCER
     Dosage: 1.5 G
     Route: 041
     Dates: start: 20161018, end: 20161228
  4. MEDI4736 (DURVALUMAB) [Suspect]
     Active Substance: DURVALUMAB
     Dosage: 1.5 G
     Route: 041
     Dates: start: 20170222, end: 20170322
  5. CARBIMAZOL [Suspect]
     Active Substance: CARBIMAZOLE
     Indication: HYPERTHYROIDISM
     Dosage: 30 MILLIGRAM
     Route: 065
     Dates: start: 20170208, end: 20170315
  6. ABRAXANE [Suspect]
     Active Substance: PACLITAXEL
     Indication: BREAST CANCER
     Dosage: 217 MILLIGRAM
     Route: 041
     Dates: start: 20161102, end: 20170104
  7. PANTOPRAZOLE [Concomitant]
     Active Substance: PANTOPRAZOLE
     Indication: PRODUCT USED FOR UNKNOWN INDICATION
     Dosage: 20 MILLIGRAM
     Route: 065
     Dates: start: 20161118
  8. CEFURAX [Concomitant]
     Active Substance: CEFUROXIME AXETIL
     Indication: PRODUCT USED FOR UNKNOWN INDICATION
     Dosage: 500 MILLIGRAM
     Route: 065
     Dates: start: 20170107
  9. MEDI4736 (DURVALUMAB) [Suspect]
     Active Substance: DURVALUMAB
     Dosage: 1.5 G
     Route: 041
     Dates: start: 20170118, end: 20170208
  10. ABRAXANE [Suspect]
     Active Substance: PACLITAXEL
     Dosage: 217 MILLIGRAM
     Route: 041
     Dates: start: 20170215, end: 20170222
  11. ABRAXANE [Suspect]
     Active Substance: PACLITAXEL
     Dosage: 217 MILLIGRAM
     Route: 041
     Dates: end: 20170208
  12. CYCLOPHOSPHAMID [Suspect]
     Active Substance: CYCLOPHOSPHAMIDE
     Indication: BREAST CANCER
     Dosage: 1044  MILLIGRAM
     Route: 041
     Dates: start: 20170301, end: 20170422
  13. MEDI4736 (DURVALUMAB) [Suspect]
     Active Substance: DURVALUMAB
     Dosage: 1.5 G
     Route: 041
     Dates: end: 20170322

REACTIONS (6)
  - Hyperthyroidism [Recovered/Resolved]
  - Hypothyroidism [Not Recovered/Not Resolved]
  - Thrombocytopenia [Recovered/Resolved]
  - Musculoskeletal chest pain [Recovered/Resolved]
  - Thrombocytopenia [Recovered/Resolved]
  - Hyperthyroidism [Recovered/Resolved]

NARRATIVE: CASE EVENT DATE: 20170108
